FAERS Safety Report 7950548-8 (Version None)
Quarter: 2011Q4

REPORT INFORMATION
  Report Type: 
  Country: None (occurrence: None)
  Receive Date: 20111130
  Receipt Date: 20111123
  Transmission Date: 20120403
  Serious: Yes (Life-Threatening, Other)
  Sender: FDA-Public Use
  Company Number: DE-ROCHE-1013658

PATIENT
  Age: 58 Year

DRUGS (3)
  1. ONDANSETRON [Suspect]
     Indication: NAUSEA
     Route: 048
  2. XELODA [Suspect]
     Indication: GASTRIC CANCER
     Route: 048
  3. METOCLOPRAMIDE [Suspect]
     Indication: NAUSEA
     Route: 048

REACTIONS (2)
  - NEOPLASM MALIGNANT [None]
  - MALIGNANT PERITONEAL NEOPLASM [None]
